FAERS Safety Report 7118518-X (Version None)
Quarter: 2010Q4

REPORT INFORMATION
  Report Type: 
  Country: None (occurrence: None)
  Receive Date: 20101123
  Receipt Date: 20100916
  Transmission Date: 20110411
  Serious: No
  Sender: FDA-Public Use
  Company Number: US-MYLANLABS-2010S1017272

PATIENT
  Age: 7 Decade
  Sex: Female
  Weight: 67.13 kg

DRUGS (3)
  1. CLONAZEPAM [Suspect]
     Indication: INSOMNIA
     Route: 048
     Dates: start: 20060101
  2. CARTIA /00489702/ [Concomitant]
     Indication: BLOOD PRESSURE INCREASED
  3. TEMAZEPAM [Concomitant]
     Indication: INSOMNIA
     Route: 048

REACTIONS (5)
  - ALOPECIA [None]
  - DANDRUFF [None]
  - DRY SKIN [None]
  - RENAL DISORDER [None]
  - WEIGHT INCREASED [None]
